FAERS Safety Report 10245302 (Version 3)
Quarter: 2014Q2

REPORT INFORMATION
  Report Type: Report from Study
  Country: CA (occurrence: CA)
  Receive Date: 20140618
  Receipt Date: 20140627
  Transmission Date: 20141212
  Serious: Yes (Hospitalization)
  Sender: FDA-Public Use
  Company Number: CA-ROCHE-1419543

PATIENT
  Age: 79 Year
  Sex: Female

DRUGS (11)
  1. RITUXAN [Suspect]
     Indication: RHEUMATOID ARTHRITIS
     Route: 042
     Dates: start: 20140603
  2. VITAMIN C [Concomitant]
     Indication: PREMEDICATION
     Route: 048
     Dates: start: 20140603
  3. ARAVA [Concomitant]
  4. FLECAINIDE [Concomitant]
  5. FOLIC ACID [Concomitant]
  6. VITAMIN C [Concomitant]
  7. VITAMIN B12 [Concomitant]
  8. DIGOXIN [Concomitant]
  9. ACETAMINOPHEN [Concomitant]
     Route: 048
     Dates: start: 20140603
  10. METHYLPREDNISOLON [Concomitant]
     Route: 042
     Dates: start: 20140603
  11. LEFLUNOMIDE [Concomitant]
     Indication: RHEUMATOID ARTHRITIS
     Route: 048
     Dates: start: 2007

REACTIONS (2)
  - Heart rate irregular [Unknown]
  - Chest discomfort [Recovered/Resolved with Sequelae]
